FAERS Safety Report 16462044 (Version 3)
Quarter: 2019Q3

REPORT INFORMATION
  Report Type: Spontaneous
  Country: JP (occurrence: JP)
  Receive Date: 20190621
  Receipt Date: 20190930
  Transmission Date: 20191004
  Serious: Yes (Other)
  Sender: FDA-Public Use
  Company Number: JP-GLAXOSMITHKLINE-JP2019JPN108826

PATIENT
  Age: 40 Year
  Sex: Male

DRUGS (6)
  1. EPINASTINE. [Concomitant]
     Active Substance: EPINASTINE HYDROCHLORIDE
     Indication: ASTHMA
     Dosage: 20 MG, QD
  2. SERETIDE [Suspect]
     Active Substance: FLUTICASONE PROPIONATE\SALMETEROL XINAFOATE
     Indication: ASTHMA
     Dosage: 250 UG, BID
     Route: 055
     Dates: start: 200910, end: 20140531
  3. SINGULAIR TABLETS [Concomitant]
     Indication: ASTHMA
     Dosage: 10 MG, QD
     Route: 048
  4. ALESION TABLETS [Concomitant]
     Indication: ASTHMA
     Dosage: 20 MG, 1D
     Route: 048
  5. MUCODYNE TABLETS [Concomitant]
     Indication: ASTHMA
     Dosage: 750 MG, 1D
     Route: 048
  6. MUCOSOLVAN TABLET [Concomitant]
     Indication: ASTHMA
     Dosage: 45 MG, 1D
     Route: 048

REACTIONS (2)
  - Haemangioma of liver [Unknown]
  - Pneumonia [Recovered/Resolved]

NARRATIVE: CASE EVENT DATE: 201206
